FAERS Safety Report 16356738 (Version 1)
Quarter: 2019Q2

REPORT INFORMATION
  Report Type: Spontaneous
  Country: AU (occurrence: AU)
  Receive Date: 20190527
  Receipt Date: 20190527
  Transmission Date: 20190711
  Serious: Yes (Other)
  Sender: FDA-Public Use
  Company Number: AU-ACCORD-129389

PATIENT
  Sex: Female

DRUGS (5)
  1. FEXOFENADINE [Suspect]
     Active Substance: FEXOFENADINE\FEXOFENADINE HYDROCHLORIDE
     Indication: MAST CELL ACTIVATION SYNDROME
     Dosage: TDS
  2. KETOTIFEN [Suspect]
     Active Substance: KETOTIFEN
     Indication: MAST CELL ACTIVATION SYNDROME
  3. RANITIDINE. [Suspect]
     Active Substance: RANITIDINE
     Indication: MAST CELL ACTIVATION SYNDROME
  4. MONTELUKAST [Suspect]
     Active Substance: MONTELUKAST SODIUM
     Indication: MAST CELL ACTIVATION SYNDROME
  5. CROMOGLICIC ACID [Suspect]
     Active Substance: CROMOLYN
     Indication: MAST CELL ACTIVATION SYNDROME
     Dosage: 5X PER DAY

REACTIONS (4)
  - Drug ineffective [Unknown]
  - Condition aggravated [Unknown]
  - Somnolence [Unknown]
  - Off label use [Unknown]
